FAERS Safety Report 8200046-1 (Version None)
Quarter: 2012Q1

REPORT INFORMATION
  Report Type: 
  Country: None (occurrence: None)
  Receive Date: 20120306
  Receipt Date: 20120227
  Transmission Date: 20120608
  Serious: Yes (Other)
  Sender: FDA-Public Use
  Company Number: AUR-APL-2012-00672

PATIENT
  Sex: Female

DRUGS (1)
  1. ALENDRONIC ACID (ALENDRONIC ACID) [Suspect]
     Indication: PRODUCT USED FOR UNKNOWN INDICATION
     Dosage: 0.1429 DOSAGE FORMS (1 DOSAGE FORMS, 1 IN 1 WK), ORAL
     Route: 048

REACTIONS (3)
  - ALOPECIA [None]
  - MYALGIA [None]
  - DISCOMFORT [None]
